FAERS Safety Report 4927118-9 (Version None)
Quarter: 2006Q1

REPORT INFORMATION
  Report Type: 
  Country: None (occurrence: None)
  Receive Date: 20060222
  Receipt Date: 20060209
  Transmission Date: 20060701
  Serious: Yes (Hospitalization)
  Sender: FDA-Public Use
  Company Number: 2006PV007798

PATIENT
  Age: 81 Year
  Sex: Male
  Weight: 97.0698 kg

DRUGS (6)
  1. BYETTA [Suspect]
     Indication: DIABETES MELLITUS NON-INSULIN-DEPENDENT
     Dosage: 10 MCG BID SC ; 5 MCG BID SC
     Route: 058
     Dates: start: 20050901, end: 20051001
  2. BYETTA [Suspect]
     Indication: DIABETES MELLITUS NON-INSULIN-DEPENDENT
     Dosage: 10 MCG BID SC ; 5 MCG BID SC
     Route: 058
     Dates: start: 20051001, end: 20051210
  3. LANTUS [Concomitant]
  4. PRANDIN [Concomitant]
  5. AMARYL [Concomitant]
  6. AVANDIA [Concomitant]

REACTIONS (11)
  - ABDOMINAL DISTENSION [None]
  - ABDOMINAL PAIN UPPER [None]
  - ANAEMIA [None]
  - CAROTID ARTERY DISEASE [None]
  - CAROTID BRUIT [None]
  - CHEST PAIN [None]
  - DYSPEPSIA [None]
  - FIBRIN D DIMER INCREASED [None]
  - LIPASE INCREASED [None]
  - RENAL FAILURE [None]
  - WEIGHT DECREASED [None]
